FAERS Safety Report 12489815 (Version 4)
Quarter: 2018Q3

REPORT INFORMATION
  Report Type: Spontaneous
  Country: DE (occurrence: DE)
  Receive Date: 20160622
  Receipt Date: 20180813
  Transmission Date: 20181010
  Serious: Yes (Death, Life-Threatening, Hospitalization, Other)
  Sender: FDA-Public Use
  Company Number: DE-TEVA-668130GER

PATIENT
  Age: 43 Year
  Sex: Male
  Weight: 133 kg

DRUGS (11)
  1. BENPERIDOL [Interacting]
     Active Substance: BENPERIDOL
     Route: 048
  2. VALPROINSAEURE [Suspect]
     Active Substance: VALPROIC ACID
  3. GASTROZEPIN [Concomitant]
     Active Substance: PIRENZEPINE HYDROCHLORIDE
     Route: 048
  4. AKINETON [Concomitant]
     Active Substance: BIPERIDEN HYDROCHLORIDE
     Route: 048
  5. OLANZAPINE. [Suspect]
     Active Substance: OLANZAPINE
     Dosage: 5?10 MG
     Route: 048
  6. VALPROAT [Interacting]
     Active Substance: VALPROATE SODIUM
     Route: 048
  7. LORAZEPAM. [Suspect]
     Active Substance: LORAZEPAM
     Indication: PRODUCT USED FOR UNKNOWN INDICATION
     Route: 048
  8. DIAZEPAM. [Interacting]
     Active Substance: DIAZEPAM
     Route: 048
  9. VALPROIC ACID. [Suspect]
     Active Substance: VALPROIC ACID
  10. ABILIFY [Interacting]
     Active Substance: ARIPIPRAZOLE
     Route: 048
  11. TAVOR EXPIDET [Interacting]
     Active Substance: LORAZEPAM
     Dosage: 1?3 MG AS REQUIRED
     Route: 048

REACTIONS (5)
  - Drug interaction [Fatal]
  - Underdose [Unknown]
  - Sedation [Unknown]
  - Drug interaction [Unknown]
  - Sudden death [Fatal]

NARRATIVE: CASE EVENT DATE: 20150616
